FAERS Safety Report 4688168-3 (Version None)
Quarter: 2005Q2

REPORT INFORMATION
  Report Type: 
  Country: None (occurrence: None)
  Receive Date: 20050610
  Receipt Date: 20041217
  Transmission Date: 20051028
  Serious: Yes (Hospitalization, Other)
  Sender: FDA-Public Use
  Company Number: PHRM2004FR03693

PATIENT
  Age: 61 Year
  Sex: Male
  Weight: 65 kg

DRUGS (4)
  1. ZOMETA [Suspect]
     Indication: METASTASES TO BONE
     Dosage: 4 MG, QMO
     Route: 042
     Dates: start: 20030129, end: 20041213
  2. TAXOTERE [Concomitant]
     Indication: METASTASES TO BONE
     Dosage: UNK, UNK
     Dates: start: 20030301, end: 20041101
  3. RADIOTHERAPY [Concomitant]
     Indication: METASTASES TO BONE
     Dates: start: 20020101
  4. OXYCONTIN [Concomitant]
     Dates: start: 20040701

REACTIONS (5)
  - HALITOSIS [None]
  - MANDIBULAR PROSTHESIS USER [None]
  - OSTEONECROSIS [None]
  - PAIN IN JAW [None]
  - SURGERY [None]
